FAERS Safety Report 13391087 (Version 1)
Quarter: 2017Q1

REPORT INFORMATION
  Report Type: Spontaneous
  Country: US (occurrence: US)
  Receive Date: 20170331
  Receipt Date: 20170331
  Transmission Date: 20170429
  Serious: No
  Sender: FDA-Public Use
  Company Number: US-009507513-1703USA007945

PATIENT
  Sex: Female

DRUGS (2)
  1. ZOSTAVAX [Suspect]
     Active Substance: VARICELLA-ZOSTER VIRUS STRAIN OKA/MERCK LIVE ANTIGEN
     Indication: PROPHYLAXIS
  2. STERILE DILUENT [Suspect]
     Active Substance: WATER

REACTIONS (2)
  - Herpes zoster [Unknown]
  - Inappropriate schedule of drug administration [Unknown]
